FAERS Safety Report 5997062-7 (Version None)
Quarter: 2008Q4

REPORT INFORMATION
  Report Type: 
  Country: None (occurrence: None)
  Receive Date: 20081208
  Receipt Date: 20081126
  Transmission Date: 20090506
  Serious: Yes (Hospitalization)
  Sender: FDA-Public Use
  Company Number: B0547250A

PATIENT
  Age: 55 Year
  Sex: Female

DRUGS (4)
  1. FLUTICASONE PROPIONATE [Suspect]
  2. BETAMETHASONE [Suspect]
  3. STEROID CREAM (STEROID) [Suspect]
     Dosage: TOPICAL
     Route: 061
  4. FLOVENT [Suspect]

REACTIONS (5)
  - DERMATITIS CONTACT [None]
  - NO THERAPEUTIC RESPONSE [None]
  - SCAB [None]
  - SKIN HYPERPIGMENTATION [None]
  - SKIN TEST POSITIVE [None]
